FAERS Safety Report 24655292 (Version 2)
Quarter: 2024Q4

REPORT INFORMATION
  Report Type: Other
  Country: ES (occurrence: ES)
  Receive Date: 20241123
  Receipt Date: 20241219
  Transmission Date: 20250114
  Serious: Yes (Hospitalization)
  Sender: ZYDUS PHARM
  Company Number: None

PATIENT

DRUGS (3)
  1. PAROXETINE [Interacting]
     Active Substance: PAROXETINE
     Indication: Suicide attempt
     Dosage: 200 MILLIGRAM, 1 TOTAL
     Route: 048
     Dates: start: 20240519, end: 20240519
  2. ALPRAZOLAM [Interacting]
     Active Substance: ALPRAZOLAM
     Indication: Suicide attempt
     Dosage: 10 MILLIGRAM, 1 TOTAL
     Route: 048
     Dates: start: 20240519, end: 20240519
  3. LORATADINE [Interacting]
     Active Substance: LORATADINE
     Indication: Suicide attempt
     Dosage: 100 MILLIGRAM, 1 TOTAL
     Route: 048
     Dates: start: 20240519, end: 20240519

REACTIONS (1)
  - Depressed level of consciousness [Recovered/Resolved]

NARRATIVE: CASE EVENT DATE: 20240519
